FAERS Safety Report 9086447 (Version 1)
Quarter: 2013Q1

REPORT INFORMATION
  Report Type: Report from Study
  Country: US (occurrence: US)
  Receive Date: 20130131
  Receipt Date: 20130131
  Transmission Date: 20140127
  Serious: No
  Sender: FDA-Public Use
  Company Number: US-ABBOTT-12P-163-0995062-00

PATIENT
  Age: 58 Year
  Sex: Female

DRUGS (10)
  1. HUMIRA [Suspect]
     Indication: ANKYLOSING SPONDYLITIS
     Route: 058
     Dates: start: 201111
  2. METHOTREXATE [Concomitant]
     Indication: ANKYLOSING SPONDYLITIS
     Route: 048
  3. FOLIC ACID [Concomitant]
     Indication: ANKYLOSING SPONDYLITIS
     Dosage: DAILY
     Route: 048
  4. OXYCONTIN [Concomitant]
     Indication: PAIN
     Route: 048
  5. MELATONIN [Concomitant]
     Indication: INSOMNIA
     Route: 048
  6. ALPRAZOLAM [Concomitant]
     Indication: INSOMNIA
     Route: 048
  7. VITAMIN D [Concomitant]
     Indication: VITAMIN D DECREASED
     Dosage: DAILY
     Route: 048
  8. KELP [Concomitant]
     Indication: SUPPLEMENTATION THERAPY
     Dosage: AMOUNT DEPENDS ON DIET FOR GOITER/IODINE SUPPLEMENT
  9. LACTULOSE [Concomitant]
     Indication: CONSTIPATION
  10. PSYLLIUM [Concomitant]
     Indication: CONSTIPATION

REACTIONS (2)
  - Blood glucose increased [Not Recovered/Not Resolved]
  - Dry eye [Unknown]
